FAERS Safety Report 25302173 (Version 1)
Quarter: 2025Q2

REPORT INFORMATION
  Report Type: Report from Study
  Country: US (occurrence: US)
  Receive Date: 20250512
  Receipt Date: 20250512
  Transmission Date: 20250716
  Serious: Yes (Hospitalization)
  Sender: BAUSCH AND LOMB
  Company Number: US-BAUSCH-BL-2025-006067

PATIENT
  Age: 55 Year
  Sex: Male

DRUGS (1)
  1. XIFAXAN [Suspect]
     Active Substance: RIFAXIMIN
     Indication: Hepatic encephalopathy
     Dosage: DURATION: 3 MONTHS
     Route: 048

REACTIONS (3)
  - Hyponatraemia [Recovering/Resolving]
  - Ammonia abnormal [Recovering/Resolving]
  - Blood electrolytes abnormal [Recovering/Resolving]

NARRATIVE: CASE EVENT DATE: 20250401
